FAERS Safety Report 7364875-9 (Version None)
Quarter: 2011Q1

REPORT INFORMATION
  Report Type: 
  Country: None (occurrence: None)
  Receive Date: 20110321
  Receipt Date: 20110310
  Transmission Date: 20110831
  Serious: Yes (Hospitalization, Other)
  Sender: FDA-Public Use
  Company Number: US-ASTRAZENECA-2011SE13609

PATIENT
  Age: 80 Year
  Sex: Male
  Weight: 68 kg

DRUGS (1)
  1. NEXIUM [Suspect]
     Indication: GASTROOESOPHAGEAL REFLUX DISEASE
     Route: 048
     Dates: start: 20100101

REACTIONS (6)
  - ANTIBIOTIC RESISTANT STAPHYLOCOCCUS TEST [None]
  - DECREASED APPETITE [None]
  - WEIGHT DECREASED [None]
  - ATRIAL FIBRILLATION [None]
  - PNEUMONIA [None]
  - DIABETIC COMPLICATION [None]
